FAERS Safety Report 7738650-7 (Version None)
Quarter: 2011Q3

REPORT INFORMATION
  Report Type: 
  Country: None (occurrence: None)
  Receive Date: 20110908
  Receipt Date: 20110905
  Transmission Date: 20111222
  Serious: Yes (Hospitalization)
  Sender: FDA-Public Use
  Company Number: JP-MERCK-1105USA04123

PATIENT
  Age: 93 Year

DRUGS (1)
  1. JANUVIA [Suspect]
     Route: 048
     Dates: start: 20110515

REACTIONS (1)
  - MUSCULOSKELETAL PAIN [None]
